FAERS Safety Report 16021980 (Version 1)
Quarter: 2019Q1

REPORT INFORMATION
  Report Type: Report from Study
  Country: DE (occurrence: DE)
  Receive Date: 20190301
  Receipt Date: 20190301
  Transmission Date: 20190418
  Serious: Yes (Other)
  Sender: FDA-Public Use
  Company Number: DE-BAUSCH-BL-2019-006511

PATIENT
  Age: 35 Year
  Sex: Male

DRUGS (1)
  1. KYNTHEUM [Suspect]
     Active Substance: BRODALUMAB
     Indication: PSORIASIS
     Route: 058
     Dates: start: 201807, end: 201902

REACTIONS (4)
  - Hepatic enzyme increased [Unknown]
  - Psoriasis [Unknown]
  - Drug effect decreased [Unknown]
  - Inflammation [Unknown]
